FAERS Safety Report 23264322 (Version 1)
Quarter: 2023Q4

REPORT INFORMATION
  Report Type: Spontaneous
  Country: CL (occurrence: CL)
  Receive Date: 20231205
  Receipt Date: 20231205
  Transmission Date: 20240110
  Serious: Yes (Hospitalization, Other)
  Sender: FDA-Public Use
  Company Number: CL-009507513-2312CHL000933

PATIENT
  Age: 72 Year

DRUGS (1)
  1. KEYTRUDA [Suspect]
     Active Substance: PEMBROLIZUMAB
     Indication: Hodgkin^s disease
     Dosage: 200 MG EVERY 21 DAYS
     Dates: start: 2022, end: 2022

REACTIONS (6)
  - Richter^s syndrome [Unknown]
  - Neck pain [Unknown]
  - Back pain [Unknown]
  - Prevertebral soft tissue swelling of cervical space [Unknown]
  - Bone disorder [Unknown]
  - Metabolic disorder [Unknown]
